FAERS Safety Report 21549646 (Version 2)
Quarter: 2022Q4

REPORT INFORMATION
  Report Type: Spontaneous
  Country: PK (occurrence: PK)
  Receive Date: 20221103
  Receipt Date: 20221103
  Transmission Date: 20230113
  Serious: Yes (Life-Threatening, Hospitalization, Other)
  Sender: FDA-Public Use
  Company Number: PK-PFIZER INC-PV202200091602

PATIENT
  Age: 52 Year
  Sex: Male

DRUGS (2)
  1. LINEZOLID [Suspect]
     Active Substance: LINEZOLID
     Dosage: 600 MG, 2X/DAY
     Route: 048
  2. CEFTRIAXONE [Concomitant]
     Active Substance: CEFTRIAXONE
     Dosage: 1 G
     Route: 042

REACTIONS (4)
  - Toxicity to various agents [Unknown]
  - Antibiotic level above therapeutic [Unknown]
  - Psychotic disorder [Recovered/Resolved]
  - Hallucination [Recovered/Resolved]
